FAERS Safety Report 17272287 (Version 1)
Quarter: 2020Q1

REPORT INFORMATION
  Report Type: Spontaneous
  Country: US (occurrence: US)
  Receive Date: 20200114
  Receipt Date: 20200114
  Transmission Date: 20200409
  Serious: Yes (Other)
  Sender: FDA-Public Use
  Company Number: None

PATIENT
  Age: 51 Year
  Sex: Female

DRUGS (7)
  1. OCALIVA [Concomitant]
     Active Substance: OBETICHOLIC ACID
     Dates: start: 20191030, end: 20200105
  2. OMPRAZOLE CAP 40MG [Concomitant]
     Dates: start: 20191129
  3. ACTIGALL CAP 300MG [Concomitant]
     Dates: start: 20190812
  4. OMEPRAZOLE CAP 20MG [Concomitant]
     Active Substance: OMEPRAZOLE
     Dates: start: 20191031
  5. LISINOPRIL TAB 10MG [Concomitant]
     Dates: start: 20191030
  6. XARELTO TAB 20MG [Concomitant]
     Dates: start: 20191010
  7. OCALIVA [Suspect]
     Active Substance: OBETICHOLIC ACID
     Route: 048
     Dates: start: 20200106

REACTIONS (2)
  - Dizziness [None]
  - Nausea [None]

NARRATIVE: CASE EVENT DATE: 20200109
